FAERS Safety Report 9753224 (Version 1)
Quarter: 2013Q4

REPORT INFORMATION
  Report Type: Spontaneous
  Country: US (occurrence: US)
  Receive Date: 20131213
  Receipt Date: 20131213
  Transmission Date: 20140711
  Serious: No
  Sender: FDA-Public Use
  Company Number: US-GILEAD-2010-0027637

PATIENT
  Sex: Female
  Weight: 62.14 kg

DRUGS (9)
  1. LETAIRIS [Suspect]
     Indication: PULMONARY ARTERIAL HYPERTENSION
     Route: 048
     Dates: start: 20100218
  2. ADCIRCA [Concomitant]
  3. NORVASC [Concomitant]
  4. ALDACTONE [Concomitant]
  5. LASIX [Concomitant]
  6. COUMADIN [Concomitant]
  7. LEVOTHYROXINE [Concomitant]
  8. MULTIVITAMIN [Concomitant]
  9. ARGININE [Concomitant]

REACTIONS (2)
  - Nasal congestion [Unknown]
  - Swelling [Unknown]
